FAERS Safety Report 5454570-5 (Version None)
Quarter: 2007Q3

REPORT INFORMATION
  Report Type: 
  Country: None (occurrence: None)
  Receive Date: 20070917
  Receipt Date: 20070912
  Transmission Date: 20080115
  Serious: Yes (Death, Hospitalization)
  Sender: FDA-Public Use
  Company Number: DE-ABBOTT-07P-062-0416860-00

PATIENT
  Sex: Female
  Weight: 53 kg

DRUGS (2)
  1. ZEMPLAR [Suspect]
     Indication: HYPERPARATHYROIDISM SECONDARY
     Route: 042
     Dates: start: 20070402, end: 20070803
  2. ZEMPLAR [Suspect]
     Route: 050
     Dates: start: 20070907, end: 20070907

REACTIONS (2)
  - HYPERTENSIVE CRISIS [None]
  - SUDDEN CARDIAC DEATH [None]
